FAERS Safety Report 8780376 (Version 2)
Quarter: 2012Q4

REPORT INFORMATION
  Report Type: Spontaneous
  Country: US (occurrence: None)
  Receive Date: 20120830
  Receipt Date: 20120924
  Transmission Date: 20130627
  Serious: Yes (Hospitalization)
  Sender: FDA-Public Use
  Company Number: AUR-APL-2012-03684

PATIENT
  Age: 21 Year
  Sex: Female

DRUGS (8)
  1. CIPROFLOXACIN (CIPROFLOXACIN) [Suspect]
     Indication: URINARY TRACT INFECTION
  2. MELOXICAM [Suspect]
     Indication: VAGINAL YEAST INFECTION
  3. ALLOPURINOL [Suspect]
     Indication: URIC ACID INCREASED
  4. HYDROXYCHLOROQUINE (HYDROXYCHLOROQUINE) [Concomitant]
  5. AMOXICILLIN AND CLAVULANATE (SPEKTRAMOX /02043401/) [Concomitant]
  6. DIPHENHYDRAMINE (DIPHENHYDRAMINE) [Concomitant]
  7. TOBRAMYCIN (TOBRAMYCIN) [Concomitant]
  8. MICONAZOLE (MICONAZOLE) [Concomitant]

REACTIONS (13)
  - Toxic epidermal necrolysis [None]
  - Urinary tract infection [None]
  - Productive cough [None]
  - Haemoptysis [None]
  - Tachycardia [None]
  - Tachypnoea [None]
  - Mucosal dryness [None]
  - Alopecia [None]
  - Transaminases increased [None]
  - Haemolytic anaemia [None]
  - Acute respiratory distress syndrome [None]
  - Fluid overload [None]
  - Systemic lupus erythematosus [None]
